FAERS Safety Report 8572158-4 (Version None)
Quarter: 2012Q3

REPORT INFORMATION
  Report Type: 
  Country: None (occurrence: None)
  Receive Date: 20120806
  Receipt Date: 20120802
  Transmission Date: 20120928
  Serious: Yes (Other)
  Sender: FDA-Public Use
  Company Number: CN-PFIZER INC-2012187490

PATIENT
  Age: 40 Year
  Sex: Male

DRUGS (1)
  1. CEFOPERAZONE SODIUM [Suspect]
     Indication: CHRONIC TONSILLITIS
     Dosage: 1.0 G, 2X/DAY
     Route: 041

REACTIONS (1)
  - GASTROINTESTINAL HAEMORRHAGE [None]
